FAERS Safety Report 23431228 (Version 1)
Quarter: 2024Q1

REPORT INFORMATION
  Report Type: Spontaneous
  Country: US (occurrence: US)
  Receive Date: 20240123
  Receipt Date: 20240123
  Transmission Date: 20240410
  Serious: Yes (Other)
  Sender: FDA-Public Use
  Company Number: US-AJANTA-2024AJA00008

PATIENT
  Sex: Female

DRUGS (1)
  1. RISPERIDONE [Suspect]
     Active Substance: RISPERIDONE
     Indication: Product used for unknown indication
     Dates: start: 20200109, end: 202001

REACTIONS (17)
  - Dementia [Unknown]
  - Immune system disorder [Unknown]
  - Eating disorder [Unknown]
  - Hypercoagulation [Unknown]
  - Migraine [Unknown]
  - Fungal infection [Unknown]
  - Contusion [Unknown]
  - Injury [Unknown]
  - Enzyme level abnormal [Unknown]
  - Blood cholesterol increased [Unknown]
  - Cardiac disorder [Unknown]
  - Diarrhoea [Unknown]
  - Rash [Unknown]
  - Swelling [Unknown]
  - Chest discomfort [Unknown]
  - Fatigue [Unknown]
  - Constipation [Unknown]

NARRATIVE: CASE EVENT DATE: 20200111
